FAERS Safety Report 9977107 (Version 1)
Quarter: 2014Q1

REPORT INFORMATION
  Report Type: Report from Study
  Country: US (occurrence: US)
  Receive Date: 20140306
  Receipt Date: 20140306
  Transmission Date: 20141002
  Serious: No
  Sender: FDA-Public Use
  Company Number: US-ABBVIE-13P-163-1168069-00

PATIENT
  Sex: Male

DRUGS (5)
  1. HUMIRA [Suspect]
     Route: 058
     Dates: start: 20130828, end: 20130828
  2. HUMIRA [Suspect]
     Route: 058
     Dates: start: 20131016
  3. HUMIRA [Suspect]
     Route: 058
     Dates: start: 20131016
  4. IRON SUPPLEMENT [Concomitant]
     Indication: PRODUCT USED FOR UNKNOWN INDICATION
  5. MULTI-VITAMIN [Concomitant]
     Indication: PRODUCT USED FOR UNKNOWN INDICATION

REACTIONS (3)
  - Inappropriate schedule of drug administration [Unknown]
  - Kidney infection [Recovered/Resolved]
  - Nephrolithiasis [Recovered/Resolved]
